FAERS Safety Report 20906847 (Version 1)
Quarter: 2022Q2

REPORT INFORMATION
  Report Type: Spontaneous
  Country: US (occurrence: US)
  Receive Date: 20220602
  Receipt Date: 20220602
  Transmission Date: 20220720
  Serious: Yes (Other)
  Sender: FDA-Public Use
  Company Number: US-drreddys-SPO/USA/22/0150622

PATIENT

DRUGS (1)
  1. ZENATANE [Suspect]
     Active Substance: ISOTRETINOIN
     Indication: Product used for unknown indication
     Dosage: RMA ISSUE DATE: 19 APRIL 2022 08:18:46 AM, 19 MARCH 2022 01:28:40 PM

REACTIONS (2)
  - Depression [Unknown]
  - Suicidal ideation [Unknown]
